FAERS Safety Report 25679821 (Version 1)
Quarter: 2025Q3

REPORT INFORMATION
  Report Type: Spontaneous
  Country: JP (occurrence: JP)
  Receive Date: 20250814
  Receipt Date: 20250814
  Transmission Date: 20251020
  Serious: Yes (Other)
  Sender: MERCK SHARP & DOHME LLC
  Company Number: JP-009507513-2315208

PATIENT
  Age: 76 Year
  Sex: Male

DRUGS (11)
  1. MOLNUPIRAVIR [Suspect]
     Active Substance: MOLNUPIRAVIR
     Indication: Product used for unknown indication
     Route: 048
     Dates: start: 20250710, end: 20250710
  2. MOLNUPIRAVIR [Suspect]
     Active Substance: MOLNUPIRAVIR
     Indication: Product used for unknown indication
     Route: 048
     Dates: start: 20250711, end: 20250711
  3. VEKLURY [Suspect]
     Active Substance: REMDESIVIR
     Indication: Product used for unknown indication
     Dates: start: 20250711, end: 20250711
  4. VEKLURY [Suspect]
     Active Substance: REMDESIVIR
     Indication: Product used for unknown indication
     Dates: start: 20250712, end: 20250712
  5. SENNOSIDES A AND B [Concomitant]
     Active Substance: SENNOSIDES A AND B
  6. ELOBIXIBAT [Concomitant]
     Active Substance: ELOBIXIBAT
  7. VALSARTAN [Concomitant]
     Active Substance: VALSARTAN
  8. RISPERIDONE [Concomitant]
     Active Substance: RISPERIDONE
  9. MAGNESIUM OXIDE [Concomitant]
     Active Substance: MAGNESIUM OXIDE
  10. QUETIAPINE FUMARATE [Concomitant]
     Active Substance: QUETIAPINE FUMARATE
  11. DAYVIGO [Concomitant]
     Active Substance: LEMBOREXANT

REACTIONS (2)
  - Hepatic function abnormal [Recovering/Resolving]
  - Drug hypersensitivity [Recovering/Resolving]

NARRATIVE: CASE EVENT DATE: 20250701
